FAERS Safety Report 8463775-0 (Version None)
Quarter: 2012Q2

REPORT INFORMATION
  Report Type: 
  Country: None (occurrence: None)
  Receive Date: 20120625
  Receipt Date: 20120611
  Transmission Date: 20120825
  Serious: Yes (Other)
  Sender: FDA-Public Use
  Company Number: US-ROCHE-1081271

PATIENT
  Sex: Male

DRUGS (4)
  1. GOSERELIN [Suspect]
     Indication: PROSTATE CANCER
     Dosage: TOTAL OF 2 YEARS
  2. AVASTIN [Suspect]
     Indication: PROSTATE CANCER
     Dosage: FOR WEEKS1 THROUGH 8
  3. AVASTIN [Suspect]
     Dosage: AFTER COMPLETION OF RADIATION THERAPY WAS CONTINUED FOR 12 WEEKS
  4. BICALUTAMIDE [Suspect]
     Indication: PROSTATE CANCER
     Dosage: TOTAL OF 16 WEEKS

REACTIONS (1)
  - NEUROTOXICITY [None]
